FAERS Safety Report 7682065-7 (Version None)
Quarter: 2011Q3

REPORT INFORMATION
  Report Type: 
  Country: None (occurrence: None)
  Receive Date: 20110810
  Receipt Date: 20110801
  Transmission Date: 20111222
  Serious: Yes (Hospitalization)
  Sender: FDA-Public Use
  Company Number: 2006-141567-NL

PATIENT
  Age: 17 Year
  Sex: Male

DRUGS (1)
  1. REMERON [Suspect]
     Indication: DEPRESSION
     Dosage: 30 MG; QD;PO
     Route: 048
     Dates: start: 20050101, end: 20050101

REACTIONS (4)
  - OFF LABEL USE [None]
  - AGITATION [None]
  - AGGRESSION [None]
  - ANGER [None]
